FAERS Safety Report 24003448 (Version 1)
Quarter: 2024Q2

REPORT INFORMATION
  Report Type: Spontaneous
  Country: CN (occurrence: CN)
  Receive Date: 20240624
  Receipt Date: 20240624
  Transmission Date: 20240716
  Serious: Yes (Other)
  Sender: FDA-Public Use
  Company Number: CN-BRISTOL-MYERS SQUIBB COMPANY-2024-100074

PATIENT
  Age: 65 Year
  Sex: Male
  Weight: 60.5 kg

DRUGS (1)
  1. REVLIMID [Suspect]
     Active Substance: LENALIDOMIDE
     Indication: Plasma cell myeloma
     Dosage: DOSE : 10 MG;     FREQ : QD
     Route: 048
     Dates: start: 20231229, end: 20240401

REACTIONS (1)
  - Myelosuppression [Recovered/Resolved with Sequelae]

NARRATIVE: CASE EVENT DATE: 20240202
